FAERS Safety Report 25395298 (Version 1)
Quarter: 2025Q2

REPORT INFORMATION
  Report Type: Spontaneous
  Country: US (occurrence: US)
  Receive Date: 20250604
  Receipt Date: 20250604
  Transmission Date: 20250717
  Serious: No
  Sender: COHERUS
  Company Number: US-COHERUS BIOSCIENCES, INC-2025-COH-US000467

PATIENT

DRUGS (4)
  1. UDENYCA [Suspect]
     Active Substance: PEGFILGRASTIM-CBQV
     Indication: Neutropenia
     Dosage: 6 MG, Q3WEEKS
     Route: 058
  2. CARBOPLATIN [Concomitant]
     Active Substance: CARBOPLATIN
  3. DOCETAXEL [Concomitant]
     Active Substance: DOCETAXEL
  4. PHESGO [Concomitant]
     Active Substance: HYALURONIDASE-ZZXF\PERTUZUMAB\TRASTUZUMAB

REACTIONS (2)
  - Device malfunction [Unknown]
  - Product dose omission issue [Unknown]

NARRATIVE: CASE EVENT DATE: 20250514
